FAERS Safety Report 9174845 (Version 1)
Quarter: 2013Q1

REPORT INFORMATION
  Report Type: Spontaneous
  Country: GB (occurrence: GB)
  Receive Date: 20130320
  Receipt Date: 20130320
  Transmission Date: 20140127
  Serious: Yes (Other)
  Sender: FDA-Public Use
  Company Number: GB-ASTRAZENECA-2013SE16371

PATIENT
  Age: 79 Year
  Sex: Male

DRUGS (10)
  1. ZOLADEX [Suspect]
     Indication: PROSTATE CANCER
     Route: 058
     Dates: start: 20130102
  2. ZOLADEX [Suspect]
     Indication: PROSTATE CANCER
     Route: 058
  3. ATORVASTATIN [Concomitant]
  4. BISOPROLOL [Concomitant]
  5. CITALOPRAM [Concomitant]
  6. CLOPIDOGREL [Concomitant]
  7. CYPROTERONE [Concomitant]
     Indication: TUMOUR FLARE
     Dates: start: 20130102
  8. OMEPRAZOLE [Concomitant]
  9. RAMIPRIL [Concomitant]
  10. SODIUM VALPROATE [Concomitant]

REACTIONS (9)
  - Arteriosclerosis [Unknown]
  - Depression [Unknown]
  - Atrial fibrillation [Unknown]
  - Cerebral infarction [Unknown]
  - Cerebrovascular accident [Unknown]
  - Coronary artery thrombosis [Unknown]
  - Atrioventricular block first degree [Unknown]
  - Pulmonary mass [Unknown]
  - Hemiparesis [Unknown]
